FAERS Safety Report 14610392 (Version 5)
Quarter: 2018Q4

REPORT INFORMATION
  Report Type: Spontaneous
  Country: BR (occurrence: BR)
  Receive Date: 20180307
  Receipt Date: 20181009
  Transmission Date: 20190204
  Serious: Yes (Hospitalization, Other)
  Sender: FDA-Public Use
  Company Number: BR-BIOMARINAP-BR-2018-117340

PATIENT
  Age: 15 Year
  Sex: Female
  Weight: 46 kg

DRUGS (2)
  1. ALDURAZYME [Suspect]
     Active Substance: LARONIDASE
     Indication: MUCOPOLYSACCHARIDOSIS I
     Dosage: 20 DF, QOW
     Route: 041
     Dates: start: 20120521, end: 20170912
  2. ALDURAZYME [Suspect]
     Active Substance: LARONIDASE
     Dosage: 10 DF, QW
     Route: 041

REACTIONS (15)
  - Insomnia [Not Recovered/Not Resolved]
  - Dizziness [Recovering/Resolving]
  - Snoring [Not Recovered/Not Resolved]
  - Malaise [Not Recovered/Not Resolved]
  - Influenza [Not Recovered/Not Resolved]
  - Pyrexia [Not Recovered/Not Resolved]
  - Dyspnoea [Not Recovered/Not Resolved]
  - Hernia [Recovering/Resolving]
  - Haemorrhage [Recovering/Resolving]
  - Fatigue [Not Recovered/Not Resolved]
  - Dysstasia [Unknown]
  - Syncope [Unknown]
  - Asthenia [Not Recovered/Not Resolved]
  - Feeling cold [Recovering/Resolving]
  - Gait inability [Unknown]

NARRATIVE: CASE EVENT DATE: 201709
